APPROVED DRUG PRODUCT: LATANOPROSTENE BUNOD
Active Ingredient: LATANOPROSTENE BUNOD
Strength: 0.024%
Dosage Form/Route: SOLUTION/DROPS;OPHTHALMIC
Application: A217387 | Product #001 | TE Code: AB
Applicant: GLAND PHARMA LTD
Approved: Apr 29, 2025 | RLD: No | RS: No | Type: RX